FAERS Safety Report 24070708 (Version 1)
Quarter: 2024Q3

REPORT INFORMATION
  Report Type: Spontaneous
  Country: MX (occurrence: MX)
  Receive Date: 20240710
  Receipt Date: 20240710
  Transmission Date: 20241017
  Serious: No
  Sender: ROCHE
  Company Number: MX-ROCHE-3487635

PATIENT
  Sex: Female
  Weight: 62.0 kg

DRUGS (1)
  1. PHESGO [Suspect]
     Active Substance: HYALURONIDASE-ZZXF\PERTUZUMAB\TRASTUZUMAB
     Indication: Ovarian cancer
     Dosage: APPLICATION ON THE LEG
     Route: 058
     Dates: start: 20231005

REACTIONS (3)
  - Off label use [Unknown]
  - Hepatic lesion [Unknown]
  - Bladder neoplasm [Unknown]

NARRATIVE: CASE EVENT DATE: 20231005
